FAERS Safety Report 11164404 (Version 4)
Quarter: 2015Q3

REPORT INFORMATION
  Report Type: Spontaneous
  Country: JP (occurrence: JP)
  Receive Date: 20150604
  Receipt Date: 20150806
  Transmission Date: 20151125
  Serious: Yes (Other)
  Sender: FDA-Public Use
  Company Number: JP-GLAXOSMITHKLINE-JP2015JPN075633

PATIENT
  Age: 72 Year
  Sex: Male

DRUGS (3)
  1. AVOLVE [Suspect]
     Active Substance: DUTASTERIDE
     Indication: BENIGN PROSTATIC HYPERPLASIA
     Dosage: 0.5 MG, 1D
     Route: 048
     Dates: start: 20140521, end: 20150602
  2. AVOLVE [Suspect]
     Active Substance: DUTASTERIDE
     Indication: DYSURIA
  3. FLIVAS [Concomitant]
     Active Substance: NAFTOPIDIL
     Dosage: 75 MG, QD

REACTIONS (2)
  - Pancytopenia [Not Recovered/Not Resolved]
  - Aplastic anaemia [Unknown]

NARRATIVE: CASE EVENT DATE: 20150331
